FAERS Safety Report 24551619 (Version 1)
Quarter: 2024Q4

REPORT INFORMATION
  Report Type: Report from Study
  Country: CA (occurrence: CA)
  Receive Date: 20241026
  Receipt Date: 20241026
  Transmission Date: 20250115
  Serious: Yes (Hospitalization, Other)
  Sender: ABBVIE
  Company Number: CA-ABBVIE-5974317

PATIENT
  Age: 56 Year
  Sex: Male

DRUGS (1)
  1. RINVOQ [Suspect]
     Active Substance: UPADACITINIB
     Indication: Rheumatoid arthritis
     Dosage: FORM STRENGTH: 15 MILLIGRAM
     Route: 048
     Dates: start: 20230922, end: 2024

REACTIONS (14)
  - Gastric polyps [Unknown]
  - Nausea [Unknown]
  - Abdominal discomfort [Unknown]
  - Unevaluable event [Unknown]
  - Skin infection [Unknown]
  - Rash pruritic [Unknown]
  - Weight decreased [Unknown]
  - Fatigue [Unknown]
  - Gastritis [Unknown]
  - Rectal haemorrhage [Unknown]
  - Diarrhoea haemorrhagic [Unknown]
  - Rectal ulcer [Unknown]
  - Abdominal pain upper [Recovering/Resolving]
  - Feeding disorder [Unknown]

NARRATIVE: CASE EVENT DATE: 20241001
